FAERS Safety Report 12893120 (Version 1)
Quarter: 2016Q4

REPORT INFORMATION
  Report Type: Spontaneous
  Country: AR (occurrence: AR)
  Receive Date: 20161028
  Receipt Date: 20161028
  Transmission Date: 20170207
  Serious: Yes (Hospitalization)
  Sender: FDA-Public Use
  Company Number: AR-ACTELION-A-CH2016-144293

PATIENT
  Age: 25 Year
  Sex: Female

DRUGS (1)
  1. ZAVESCA [Suspect]
     Active Substance: MIGLUSTAT
     Indication: NIEMANN-PICK DISEASE
     Dosage: UNK
     Route: 048
     Dates: start: 20140109, end: 20161007

REACTIONS (4)
  - Sepsis [Unknown]
  - Diarrhoea [Unknown]
  - Multiple organ dysfunction syndrome [Unknown]
  - Dermatitis [Unknown]
